FAERS Safety Report 22953976 (Version 4)
Quarter: 2025Q2

REPORT INFORMATION
  Report Type: Report from Study
  Country: BR (occurrence: BR)
  Receive Date: 20230918
  Receipt Date: 20250626
  Transmission Date: 20250717
  Serious: Yes (Other)
  Sender: TAKEDA
  Company Number: BR-TAKEDA-BR201929902

PATIENT
  Age: 7 Year
  Sex: Male
  Weight: 61 kg

DRUGS (15)
  1. IDURSULFASE [Suspect]
     Active Substance: IDURSULFASE
     Indication: Mucopolysaccharidosis II
  2. IDURSULFASE [Suspect]
     Active Substance: IDURSULFASE
  3. IDURSULFASE [Suspect]
     Active Substance: IDURSULFASE
     Dosage: 6 DOSAGE FORM, 1/WEEK
     Dates: start: 20091221
  4. IDURSULFASE [Suspect]
     Active Substance: IDURSULFASE
  5. IDURSULFASE [Suspect]
     Active Substance: IDURSULFASE
  6. IDURSULFASE [Suspect]
     Active Substance: IDURSULFASE
  7. IDURSULFASE [Suspect]
     Active Substance: IDURSULFASE
     Dosage: UNK UNK, 2/MONTH
  8. IDURSULFASE [Suspect]
     Active Substance: IDURSULFASE
     Dosage: 17 DOSAGE FORM, MONTHLY
  9. IDURSULFASE [Suspect]
     Active Substance: IDURSULFASE
     Dosage: UNK UNK, 2/MONTH
  10. IDURSULFASE [Suspect]
     Active Substance: IDURSULFASE
  11. IDURSULFASE [Suspect]
     Active Substance: IDURSULFASE
  12. IDURSULFASE [Suspect]
     Active Substance: IDURSULFASE
  13. IDURSULFASE [Suspect]
     Active Substance: IDURSULFASE
     Dosage: 24 DOSAGE FORM, MONTHLY
  14. COVID-19 VACCINE NOS [Suspect]
     Active Substance: COVID-19 VACCINE
     Indication: Product used for unknown indication
  15. COVID-19 VACCINE NOS [Suspect]
     Active Substance: COVID-19 VACCINE

REACTIONS (17)
  - Mitral valve incompetence [Unknown]
  - Tricuspid valve incompetence [Unknown]
  - Anterior chamber disorder [Unknown]
  - Weight increased [Unknown]
  - Product availability issue [Recovered/Resolved]
  - Neurodevelopmental delay [Unknown]
  - Respiratory tract infection [Unknown]
  - Hepatosplenomegaly [Unknown]
  - Tympanometry abnormal [Unknown]
  - Visual impairment [Unknown]
  - Product dispensing error [Unknown]
  - Depressed mood [Unknown]
  - Pain [Recovered/Resolved]
  - Vaccination site pain [Recovered/Resolved]
  - Inappropriate schedule of product administration [Unknown]
  - Product use issue [Recovered/Resolved]
  - Pyrexia [Recovered/Resolved]

NARRATIVE: CASE EVENT DATE: 20091201
